FAERS Safety Report 20146545 (Version 5)
Quarter: 2022Q2

REPORT INFORMATION
  Report Type: Report from Study
  Country: CA (occurrence: CA)
  Receive Date: 20211203
  Receipt Date: 20220627
  Transmission Date: 20220721
  Serious: Yes (Hospitalization)
  Sender: FDA-Public Use
  Company Number: CA-OTSUKA-2021_041286

PATIENT
  Sex: Male

DRUGS (1)
  1. CEDAZURIDINE\DECITABINE [Suspect]
     Active Substance: CEDAZURIDINE\DECITABINE
     Indication: Myelodysplastic syndrome
     Dosage: UNK, EVERY 4 WEEKS
     Route: 065
     Dates: start: 20211104

REACTIONS (5)
  - Full blood count abnormal [Unknown]
  - Herpes zoster [Unknown]
  - Night sweats [Unknown]
  - Biopsy bone marrow [Unknown]
  - Pyrexia [Unknown]
